FAERS Safety Report 9433482 (Version 1)
Quarter: 2013Q3

REPORT INFORMATION
  Report Type: Spontaneous
  Country: GB (occurrence: GB)
  Receive Date: 20130731
  Receipt Date: 20130731
  Transmission Date: 20140515
  Serious: Yes (Other)
  Sender: FDA-Public Use
  Company Number: ALCN2013GB000756

PATIENT
  Sex: 0

DRUGS (7)
  1. OLOPATADINE HYDROCHLORIDE [Suspect]
     Indication: KERATITIS
     Dosage: UNK GTT, BID
     Route: 047
  2. OLOPATADINE HYDROCHLORIDE [Suspect]
     Indication: ECZEMA EYELIDS
  3. PREDNISOLONE [Concomitant]
     Indication: KERATITIS
     Dosage: UNK, QID
     Route: 061
  4. PREDNISOLONE [Concomitant]
     Indication: ECZEMA EYELIDS
  5. DEXAMETHASONE [Concomitant]
     Dosage: UNK, QID
     Route: 047
  6. DEXAMETHASONE [Concomitant]
     Dosage: UNK, BID
     Route: 047
  7. ARTIFICIAL TEARS                   /00880201/ [Concomitant]
     Dosage: UNK GTT, QH
     Route: 047

REACTIONS (3)
  - Ulcerative keratitis [Recovered/Resolved with Sequelae]
  - Visual acuity reduced [Recovered/Resolved]
  - Drug ineffective [Unknown]
